FAERS Safety Report 6394567-4 (Version None)
Quarter: 2009Q4

REPORT INFORMATION
  Report Type: 
  Country: None (occurrence: None)
  Receive Date: 20091009
  Receipt Date: 20091007
  Transmission Date: 20100525
  Serious: Yes (Death, Hospitalization)
  Sender: FDA-Public Use
  Company Number: US-WYE-H11440509

PATIENT
  Age: 51 Year
  Sex: Female
  Weight: 98.8 kg

DRUGS (5)
  1. MYLOTARG [Suspect]
     Indication: ACUTE MYELOID LEUKAEMIA
     Dosage: 6MG/MS OVER 2 HR 1 DAY (INDUCTION THERAPY)
     Route: 042
     Dates: start: 20090521, end: 20090625
  2. CYTARABINE [Suspect]
     Indication: ACUTE MYELOID LEUKAEMIA
     Dosage: 100MG/M^2/DAY CONTINUOUS 1-7 DAYS (INDUCTION)
     Dates: start: 20090521, end: 20090101
  3. CYTARABINE [Suspect]
     Dosage: 100MG/M^2/DAY CONTINUOUS 1-7 DAYS (RE-INTRODUCTION)
     Dates: start: 20090101, end: 20090719
  4. DAUNORUBICIN HCL [Suspect]
     Indication: ACUTE MYELOID LEUKAEMIA
     Dosage: 45MG/M^2 IV PUSH 1-3 DAYS (INDUCTION)
     Dates: start: 20090521
  5. DAUNORUBICIN HCL [Suspect]
     Dosage: 60MG/M^2 IV PUSH 1-3 DAYS (RE-INTRODUCTION)
     Dates: start: 20090101, end: 20090615

REACTIONS (1)
  - ACUTE RESPIRATORY DISTRESS SYNDROME [None]
